FAERS Safety Report 23234151 (Version 1)
Quarter: 2023Q4

REPORT INFORMATION
  Report Type: Spontaneous
  Country: US (occurrence: US)
  Receive Date: 20231128
  Receipt Date: 20231128
  Transmission Date: 20240110
  Serious: Yes (Hospitalization, Other)
  Sender: FDA-Public Use
  Company Number: US-LUPIN PHARMACEUTICALS INC.-2023-10535

PATIENT
  Age: 48 Year
  Sex: Female

DRUGS (2)
  1. LAMOTRIGINE [Suspect]
     Active Substance: LAMOTRIGINE
     Indication: Product used for unknown indication
     Dosage: UNK, INGESTED 45 TABLETS
     Route: 048
  2. LEVOTHYROXINE [Suspect]
     Active Substance: LEVOTHYROXINE
     Indication: Hypothyroidism
     Dosage: UNK
     Route: 048

REACTIONS (8)
  - Overdose [Unknown]
  - Hypothyroidism [Unknown]
  - Myxoedema [Unknown]
  - Drug level increased [Unknown]
  - Agitation [Unknown]
  - Disorientation [Unknown]
  - Treatment noncompliance [Unknown]
  - Psychotic disorder [Unknown]
